FAERS Safety Report 18506561 (Version 1)
Quarter: 2020Q4

REPORT INFORMATION
  Report Type: Spontaneous
  Country: US (occurrence: US)
  Receive Date: 20201113
  Receipt Date: 20201113
  Transmission Date: 20210114
  Serious: Yes (Hospitalization)
  Sender: FDA-Public Use
  Company Number: None

PATIENT
  Age: 67 Year
  Sex: Male

DRUGS (18)
  1. AZELASTINE. [Concomitant]
     Active Substance: AZELASTINE HYDROCHLORIDE
  2. LISINOPRIL. [Concomitant]
     Active Substance: LISINOPRIL
  3. SEREVENT DISKUS [Concomitant]
     Active Substance: SALMETEROL XINAFOATE
  4. DOXAZOSIN [Concomitant]
     Active Substance: DOXAZOSIN MESYLATE
  5. PANTOPRAZOLE [Concomitant]
     Active Substance: PANTOPRAZOLE
  6. ONDANSETRON [Concomitant]
     Active Substance: ONDANSETRON
  7. VENTOLIN [Concomitant]
     Active Substance: ALBUTEROL SULFATE
  8. XOLAIR [Suspect]
     Active Substance: OMALIZUMAB
     Indication: ASTHMA
     Route: 058
     Dates: start: 20150820
  9. MONTELUKAST [Concomitant]
     Active Substance: MONTELUKAST SODIUM
  10. OMNARIS [Concomitant]
     Active Substance: CICLESONIDE
  11. ASMANEX [Concomitant]
     Active Substance: MOMETASONE FUROATE
  12. PRAVASTATIN. [Concomitant]
     Active Substance: PRAVASTATIN
  13. AMITRIPTYLIN [Concomitant]
     Active Substance: AMITRIPTYLINE
  14. BENZONATATE. [Concomitant]
     Active Substance: BENZONATATE
  15. VIRTUSSIN [Concomitant]
  16. FLOVENT [Concomitant]
     Active Substance: FLUTICASONE PROPIONATE
  17. GABAPENTIN. [Concomitant]
     Active Substance: GABAPENTIN
  18. ALVESCO [Concomitant]
     Active Substance: CICLESONIDE

REACTIONS (1)
  - Ventriculo-peritoneal shunt [None]

NARRATIVE: CASE EVENT DATE: 202010
